FAERS Safety Report 23235624 (Version 2)
Quarter: 2023Q4

REPORT INFORMATION
  Report Type: Spontaneous
  Country: US (occurrence: US)
  Receive Date: 20231128
  Receipt Date: 20231201
  Transmission Date: 20240110
  Serious: Yes (Other)
  Sender: FDA-Public Use
  Company Number: US-PFIZER INC-PV202300191220

PATIENT
  Age: 75 Year
  Sex: Female

DRUGS (1)
  1. IBRANCE [Suspect]
     Active Substance: PALBOCICLIB
     Indication: Breast cancer female
     Dosage: 75 MG, CYCLIC (TAKE 1 TABLET (75 MG) BY MOUTH DAILY FOR 21 DAYS. TAKE DAYS 1-21 OF A 28 DAY)
     Route: 048
     Dates: start: 20230822, end: 20230912

REACTIONS (1)
  - Neutropenia [Unknown]
